FAERS Safety Report 9599590 (Version 1)
Quarter: 2013Q4

REPORT INFORMATION
  Report Type: Spontaneous
  Country: US (occurrence: US)
  Receive Date: 20131004
  Receipt Date: 20131004
  Transmission Date: 20140711
  Serious: No
  Sender: FDA-Public Use
  Company Number: US-AMGEN-USASP2013030336

PATIENT
  Age: 59 Year
  Sex: Male
  Weight: 99.77 kg

DRUGS (4)
  1. ENBREL [Suspect]
     Indication: PRODUCT USED FOR UNKNOWN INDICATION
     Dosage: 50 MG, QWK
     Route: 058
  2. IRON [Concomitant]
     Dosage: UNK
  3. VITAMIN B1 [Concomitant]
     Dosage: 100 MG, UNK
  4. HUMIRA [Concomitant]
     Dosage: PEN KIT 40 MG/0.8

REACTIONS (1)
  - Drug tolerance [Unknown]
